FAERS Safety Report 16419249 (Version 2)
Quarter: 2019Q2

REPORT INFORMATION
  Report Type: Spontaneous
  Country: IT (occurrence: IT)
  Receive Date: 20190612
  Receipt Date: 20190621
  Transmission Date: 20190711
  Serious: Yes (Other)
  Sender: FDA-Public Use
  Company Number: IT-ACCORD-126400

PATIENT
  Age: 75 Year
  Sex: Male

DRUGS (5)
  1. FLUOROURACIL. [Suspect]
     Active Substance: FLUOROURACIL
     Indication: COLON CANCER
     Dosage: ALSO RECEIVED 4008 MG ON 19-DEC-2018,ALSO RECEIVED AS 501 MG DOSE FROM 20-NOV-2018.
     Route: 041
     Dates: start: 20181120
  2. OXALIPLATIN. [Suspect]
     Active Substance: OXALIPLATIN
     Indication: COLON CANCER
     Dosage: ALSO RECEIVED 142 MG ON 19-DEC-2018
     Route: 042
     Dates: start: 20181120
  3. FOLINIC ACID [Concomitant]
     Active Substance: LEUCOVORIN
     Indication: COLON CANCER
     Dosage: ALSO RECEIVED 334 MG ON 19-DEC-2018
     Route: 042
     Dates: start: 20181120
  4. FLUOROURACIL MEDA [Suspect]
     Active Substance: FLUOROURACIL
     Indication: COLON CANCER
     Dosage: ALSO RECEIVED 668 MG ON 19-DEC-2018
     Route: 040
     Dates: start: 20181120
  5. ERBITUX [Suspect]
     Active Substance: CETUXIMAB
     Indication: COLON CANCER
     Route: 042
     Dates: start: 20181108

REACTIONS (4)
  - Neuropathy peripheral [Recovering/Resolving]
  - Neurotoxicity [Recovered/Resolved]
  - Palmar-plantar erythrodysaesthesia syndrome [Recovering/Resolving]
  - Nail disorder [Recovering/Resolving]

NARRATIVE: CASE EVENT DATE: 20190116
